FAERS Safety Report 6835268-5 (Version None)
Quarter: 2010Q3

REPORT INFORMATION
  Report Type: 
  Country: None (occurrence: None)
  Receive Date: 20100713
  Receipt Date: 20100629
  Transmission Date: 20110219
  Serious: Yes (Life-Threatening, Hospitalization, Other)
  Sender: FDA-Public Use
  Company Number: GB-RANBAXY-2010RR-35590

PATIENT
  Age: 23 Year
  Sex: Female
  Weight: 83 kg

DRUGS (2)
  1. CIPROFLOXACIN [Suspect]
     Indication: PYELONEPHRITIS
     Dosage: 250 MG, BID
     Route: 048
     Dates: start: 20100531, end: 20100601
  2. VALPROATE SODIUM [Concomitant]
     Indication: EPILEPSY
     Dosage: 200 MG, BID

REACTIONS (1)
  - EPILEPSY [None]
